FAERS Safety Report 7914095-1 (Version None)
Quarter: 2011Q4

REPORT INFORMATION
  Report Type: 
  Country: None (occurrence: None)
  Receive Date: 20111115
  Receipt Date: 20111110
  Transmission Date: 20120403
  Serious: Yes (Disabling, Other)
  Sender: FDA-Public Use
  Company Number: US-SANOFI-AVENTIS-2011SA070415

PATIENT
  Sex: Male
  Weight: 77.27 kg

DRUGS (2)
  1. TAXOTERE [Suspect]
     Route: 041
     Dates: start: 20110615, end: 20110615
  2. TAXOTERE [Suspect]
     Indication: PROSTATE CANCER
     Route: 041
     Dates: start: 20100804, end: 20100804

REACTIONS (6)
  - WEIGHT DECREASED [None]
  - LACRIMAL DISORDER [None]
  - ABASIA [None]
  - MYALGIA [None]
  - AKINESIA [None]
  - CHRONIC LYMPHOCYTIC LEUKAEMIA [None]
